FAERS Safety Report 5308299-4 (Version None)
Quarter: 2007Q2

REPORT INFORMATION
  Report Type: 
  Country: None (occurrence: None)
  Receive Date: 20070426
  Receipt Date: 20070417
  Transmission Date: 20071010
  Serious: Yes (Death, Hospitalization)
  Sender: FDA-Public Use
  Company Number: NL-JNJFOC-20070403694

PATIENT
  Age: 74 Year
  Sex: Male

DRUGS (2)
  1. INFLIXIMAB [Suspect]
  2. INFLIXIMAB [Suspect]
     Indication: RHEUMATOID ARTHRITIS

REACTIONS (7)
  - ANEURYSM RUPTURED [None]
  - EMPYEMA [None]
  - HAEMORRHAGE [None]
  - MYCOTIC ANEURYSM [None]
  - PLEURAL DISORDER [None]
  - SALMONELLA SEPSIS [None]
  - STREPTOCOCCAL INFECTION [None]
